FAERS Safety Report 17750601 (Version 2)
Quarter: 2021Q2

REPORT INFORMATION
  Report Type: Report from Study
  Country: AR (occurrence: AR)
  Receive Date: 20200506
  Receipt Date: 20210608
  Transmission Date: 20210716
  Serious: Yes (Hospitalization, Disabling, Other)
  Sender: FDA-Public Use
  Company Number: PHHY2014AR161788

PATIENT
  Sex: Male
  Weight: 113 kg

DRUGS (6)
  1. GILENYA [Suspect]
     Active Substance: FINGOLIMOD HYDROCHLORIDE
     Indication: MULTIPLE SCLEROSIS
     Dosage: 0.5 MG, QD
     Route: 065
     Dates: start: 2005
  2. GILENYA [Suspect]
     Active Substance: FINGOLIMOD HYDROCHLORIDE
     Dosage: UNK , QD
     Route: 065
     Dates: start: 201409, end: 201807
  3. GILENYA [Suspect]
     Active Substance: FINGOLIMOD HYDROCHLORIDE
     Dosage: 0.5 MG, QD
     Route: 065
     Dates: start: 202004
  4. FAMPRIDINE [Concomitant]
     Active Substance: DALFAMPRIDINE
     Indication: PRODUCT USED FOR UNKNOWN INDICATION
     Dosage: UNK UNK, BID
     Route: 065
  5. GILENYA [Suspect]
     Active Substance: FINGOLIMOD HYDROCHLORIDE
     Dosage: 0.5 MG
     Route: 048
     Dates: start: 20130809
  6. GILENYA [Suspect]
     Active Substance: FINGOLIMOD HYDROCHLORIDE
     Dosage: 0.5 MG, QD
     Route: 065
     Dates: start: 20130814, end: 201406

REACTIONS (22)
  - Erysipelas [Recovered/Resolved]
  - Gait disturbance [Not Recovered/Not Resolved]
  - Maculopathy [Unknown]
  - Movement disorder [Unknown]
  - Foot deformity [Unknown]
  - Pyrexia [Recovered/Resolved]
  - Mental disorder [Unknown]
  - Joint swelling [Unknown]
  - Hypertension [Not Recovered/Not Resolved]
  - Concomitant disease aggravated [Unknown]
  - Multiple sclerosis relapse [Unknown]
  - Visual impairment [Unknown]
  - Peripheral swelling [Recovered/Resolved]
  - Weight increased [Unknown]
  - Inappropriate schedule of product administration [Unknown]
  - Motor dysfunction [Unknown]
  - Hypertension [Recovered/Resolved]
  - Feeling abnormal [Unknown]
  - Limb discomfort [Not Recovered/Not Resolved]
  - Fluid retention [Unknown]
  - Muscular weakness [Not Recovered/Not Resolved]
  - Fall [Not Recovered/Not Resolved]

NARRATIVE: CASE EVENT DATE: 2017
